FAERS Safety Report 9688598 (Version 1)
Quarter: 2013Q4

REPORT INFORMATION
  Report Type: Spontaneous
  Country: US (occurrence: US)
  Receive Date: 20131114
  Receipt Date: 20131114
  Transmission Date: 20140711
  Serious: No
  Sender: FDA-Public Use
  Company Number: US-PFIZER INC-2013324537

PATIENT
  Age: 67 Year
  Sex: Male
  Weight: 74.83 kg

DRUGS (2)
  1. ATORVASTATIN CALCIUM [Suspect]
     Indication: BLOOD CHOLESTEROL INCREASED
     Dosage: 20 MG, 1X/DAY
     Route: 048
     Dates: start: 2012, end: 2013
  2. VITAMIN B12 [Concomitant]
     Dosage: UNK

REACTIONS (1)
  - Myalgia [Recovered/Resolved]
